FAERS Safety Report 4684918-0 (Version None)
Quarter: 2005Q2

REPORT INFORMATION
  Report Type: 
  Country: None (occurrence: None)
  Receive Date: 20050606
  Receipt Date: 20050606
  Transmission Date: 20051028
  Serious: No
  Sender: FDA-Public Use
  Company Number: None

PATIENT
  Age: 42 Year

DRUGS (4)
  1. BACTRIM [Suspect]
     Indication: URINARY TRACT INFECTION
  2. TENORMIN [Concomitant]
  3. ZESTRIL [Concomitant]
  4. PHENAZOPYRIDINE HCL TAB [Concomitant]

REACTIONS (4)
  - PHOTOSENSITIVITY REACTION [None]
  - PYREXIA [None]
  - RASH [None]
  - RASH ERYTHEMATOUS [None]
